FAERS Safety Report 7569576-X (Version None)
Quarter: 2011Q2

REPORT INFORMATION
  Report Type: 
  Country: None (occurrence: None)
  Receive Date: 20110621
  Receipt Date: 20110621
  Transmission Date: 20111010
  Serious: Yes (Life-Threatening, Hospitalization, Other)
  Sender: FDA-Public Use
  Company Number: None

PATIENT
  Sex: Male
  Weight: 86.4 kg

DRUGS (2)
  1. MACROBID [Suspect]
     Dosage: 2 100MG PILLS/DAY
     Dates: start: 20110526
  2. MACROBID [Suspect]
     Dosage: 1 100MG PILL
     Dates: start: 20110601

REACTIONS (5)
  - SOMNOLENCE [None]
  - PAIN [None]
  - PYREXIA [None]
  - ASTHENIA [None]
  - SYNCOPE [None]
